FAERS Safety Report 5788187-X (Version None)
Quarter: 2008Q2

REPORT INFORMATION
  Report Type: 
  Country: None (occurrence: None)
  Receive Date: 20080625
  Receipt Date: 20080616
  Transmission Date: 20081010
  Serious: Yes (Death)
  Sender: FDA-Public Use
  Company Number: JP-ABBOTT-08P-087-0458398-00

PATIENT
  Age: 75 Year
  Sex: Male

DRUGS (6)
  1. LEUPLIN DEPOT [Suspect]
     Indication: PROSTATE CANCER STAGE IV
     Route: 058
     Dates: start: 20070312, end: 20070312
  2. BICALUTAMIDE [Concomitant]
     Indication: PROSTATE CANCER STAGE IV
     Route: 048
     Dates: end: 20070530
  3. DEXAMETHASONE [Concomitant]
     Indication: PROSTATE CANCER STAGE IV
     Route: 048
     Dates: end: 20070530
  4. ZOLEDRONIC ACID [Concomitant]
     Indication: PROSTATE CANCER STAGE IV
     Route: 042
     Dates: end: 20070530
  5. TEGAFUR URACIL [Concomitant]
     Indication: PROSTATE CANCER STAGE IV
     Route: 048
     Dates: end: 20070530
  6. OXYCODONE HCL [Concomitant]
     Indication: PROSTATE CANCER STAGE IV
     Route: 048
     Dates: end: 20070530

REACTIONS (1)
  - PROSTATE CANCER STAGE IV [None]
